FAERS Safety Report 21978725 (Version 1)
Quarter: 2023Q1

REPORT INFORMATION
  Report Type: Spontaneous
  Country: US (occurrence: None)
  Receive Date: 20230209
  Receipt Date: 20230209
  Transmission Date: 20230417
  Serious: Yes (Other)
  Sender: FDA-Public Use
  Company Number: None

PATIENT
  Age: 9 Year
  Sex: Male
  Weight: 32.4 kg

DRUGS (2)
  1. METHYLPHENIDATE HYDROCHLORIDE [Suspect]
     Active Substance: METHYLPHENIDATE HYDROCHLORIDE
     Dosage: OTHER QUANTITY : 30 TABLET(S);?
     Route: 048
     Dates: start: 20230127, end: 20230129
  2. Concerta/Methylphenidate 27mg daily [Concomitant]

REACTIONS (5)
  - Product substitution issue [None]
  - Anxiety [None]
  - Tic [None]
  - Insomnia [None]
  - Appetite disorder [None]

NARRATIVE: CASE EVENT DATE: 20230127
